FAERS Safety Report 13948132 (Version 8)
Quarter: 2019Q2

REPORT INFORMATION
  Report Type: Spontaneous
  Country: US (occurrence: US)
  Receive Date: 20170908
  Receipt Date: 20190605
  Transmission Date: 20190711
  Serious: Yes (Other)
  Sender: FDA-Public Use
  Company Number: US-PFIZER INC-2017354884

PATIENT
  Age: 62 Year
  Sex: Female

DRUGS (17)
  1. GABAPENTIN. [Concomitant]
     Active Substance: GABAPENTIN
     Dosage: 300 MG, 2X/DAY
  2. FERROUS GLUCONATE [Concomitant]
     Active Substance: FERROUS GLUCONATE
     Dosage: 234 MG, 2X/DAY
  3. LYRICA [Suspect]
     Active Substance: PREGABALIN
     Indication: MONONEUROPATHY
  4. ETODOLAC. [Concomitant]
     Active Substance: ETODOLAC
     Dosage: 500 MG, 2X/DAY
  5. OMEPRAZOLE. [Concomitant]
     Active Substance: OMEPRAZOLE
     Dosage: 20 MG, 1X/DAY
  6. PREDNISONE. [Concomitant]
     Active Substance: PREDNISONE
     Dosage: 10 MG, 1X/DAY
  7. CYCLOBENZAPRIN [Concomitant]
     Active Substance: CYCLOBENZAPRINE
     Dosage: 5 MG, AS NEEDED
  8. RANITIDINE. [Concomitant]
     Active Substance: RANITIDINE
     Dosage: 150 MG, 2X/DAY
  9. SIMVASTATIN. [Concomitant]
     Active Substance: SIMVASTATIN
     Dosage: 40 MG, 1X/DAY
  10. LYRICA [Suspect]
     Active Substance: PREGABALIN
     Indication: DIABETIC NEUROPATHY
  11. LYRICA [Suspect]
     Active Substance: PREGABALIN
     Indication: PAIN IN EXTREMITY
  12. FLUTICASONE W/SALMETEROL [Concomitant]
     Active Substance: FLUTICASONE PROPIONATE\SALMETEROL XINAFOATE
     Dosage: UNK, 2X/DAY(FLUTICASONE: 100 MCG/SALMETEROL: 50 MCG)(1 PUFF )
  13. LYRICA [Suspect]
     Active Substance: PREGABALIN
     Indication: SCLERODERMA
     Dosage: 150 MG, 3X/DAY
     Route: 048
  14. LYRICA [Suspect]
     Active Substance: PREGABALIN
     Indication: NEUROPATHY PERIPHERAL
  15. LYRICA [Suspect]
     Active Substance: PREGABALIN
     Indication: TYPE 2 DIABETES MELLITUS
  16. NOVOLIN N [Concomitant]
     Active Substance: INSULIN HUMAN
     Dosage: UNK, 2X/DAY (44 UNITS IN AM -24 UNITS IN PM)
  17. LISINOPRIL. [Concomitant]
     Active Substance: LISINOPRIL
     Dosage: 30 MG, 1X/DAY

REACTIONS (8)
  - Sleep disorder [Unknown]
  - Gait disturbance [Unknown]
  - Burning sensation [Unknown]
  - Peripheral swelling [Unknown]
  - Localised infection [Unknown]
  - Paraesthesia [Unknown]
  - Pain in extremity [Unknown]
  - Peripheral coldness [Unknown]
